FAERS Safety Report 12598777 (Version 1)
Quarter: 2016Q3

REPORT INFORMATION
  Report Type: Spontaneous
  Country: US (occurrence: US)
  Receive Date: 20160726
  Receipt Date: 20160726
  Transmission Date: 20161109
  Serious: No
  Sender: FDA-Public Use
  Company Number: US-IMPAX LABORATORIES, INC-2015-IPXL-01204

PATIENT
  Age: 46 Year
  Sex: Female
  Weight: 82.54 kg

DRUGS (1)
  1. ADRENACLICK [Suspect]
     Active Substance: EPINEPHRINE
     Indication: RUBBER SENSITIVITY
     Dosage: 0.3 MG, UNK
     Route: 030
     Dates: start: 201511

REACTIONS (2)
  - Drug ineffective [Unknown]
  - Administration site bruise [Unknown]

NARRATIVE: CASE EVENT DATE: 201511
